FAERS Safety Report 8433425-8 (Version None)
Quarter: 2012Q2

REPORT INFORMATION
  Report Type: 
  Country: None (occurrence: None)
  Receive Date: 20120613
  Receipt Date: 20120606
  Transmission Date: 20120825
  Serious: Yes (Hospitalization)
  Sender: FDA-Public Use
  Company Number: US-BRISTOL-MYERS SQUIBB COMPANY-16551434

PATIENT
  Age: 54 Year
  Sex: Female

DRUGS (4)
  1. CELEXA [Concomitant]
     Indication: DEPRESSION
     Route: 048
     Dates: start: 20040101
  2. MULTI-VITAMIN [Concomitant]
     Indication: VITAMIN SUPPLEMENTATION
     Dosage: 1DF=1 TAB
     Route: 048
     Dates: start: 19820101
  3. MDX-1106 [Suspect]
     Indication: MALIGNANT MELANOMA
     Dosage: 3 MG/KG  INTERR ON 02APR12
     Route: 042
     Dates: start: 20120402
  4. IPILIMUMAB [Suspect]
     Indication: MALIGNANT MELANOMA
     Dosage: 3 MG/KG
     Route: 042
     Dates: start: 20120402

REACTIONS (4)
  - HYPERTHYROIDISM [None]
  - HYPOTENSION [None]
  - VIRAL INFECTION [None]
  - LIPASE INCREASED [None]
